FAERS Safety Report 4576595-4 (Version None)
Quarter: 2005Q1

REPORT INFORMATION
  Report Type: 
  Country: None (occurrence: None)
  Receive Date: 20050119
  Receipt Date: 20040920
  Transmission Date: 20050727
  Serious: Yes (Hospitalization)
  Sender: FDA-Public Use
  Company Number: A03200403236

PATIENT
  Age: 85 Year
  Sex: Male

DRUGS (2)
  1. PLAVIX [Suspect]
     Dosage: ORAL  A FEW YEARS
     Route: 048
  2. AUGMENTIN '125' [Suspect]
     Dosage: ORAL
     Route: 048

REACTIONS (2)
  - HAEMOGLOBIN DECREASED [None]
  - HAEMORRHAGE URINARY TRACT [None]
